FAERS Safety Report 9324089 (Version 1)
Quarter: 2013Q2

REPORT INFORMATION
  Report Type: Spontaneous
  Country: JP (occurrence: JP)
  Receive Date: 20130603
  Receipt Date: 20130603
  Transmission Date: 20140414
  Serious: Yes (Other)
  Sender: FDA-Public Use
  Company Number: JP-009507513-1305JPN017463

PATIENT
  Sex: 0

DRUGS (1)
  1. TIENAM FOR INTRAVENOUS DRIP INFUSION [Suspect]
     Dosage: DAILY DOSAGE UNKNOWN
     Route: 041

REACTIONS (2)
  - Respiratory arrest [Unknown]
  - Respiratory depression [Unknown]
